FAERS Safety Report 23793760 (Version 1)
Quarter: 2024Q2

REPORT INFORMATION
  Report Type: Spontaneous
  Country: US (occurrence: None)
  Receive Date: 20240425
  Receipt Date: 20240425
  Transmission Date: 20240716
  Serious: Yes (Disabling)
  Sender: FDA-Public Use
  Company Number: None

PATIENT
  Age: 75 Year
  Sex: Female
  Weight: 49.5 kg

DRUGS (1)
  1. BOTOX [Suspect]
     Active Substance: ONABOTULINUMTOXINA
     Indication: Incontinence
     Dates: start: 20240423, end: 20240423

REACTIONS (7)
  - Inappropriate affect [None]
  - Fall [None]
  - Muscle spasticity [None]
  - Gait disturbance [None]
  - Muscular weakness [None]
  - Pain [None]
  - Pain [None]

NARRATIVE: CASE EVENT DATE: 20240423
